FAERS Safety Report 7249728-9 (Version None)
Quarter: 2010Q4

REPORT INFORMATION
  Report Type: 
  Country: None (occurrence: None)
  Receive Date: 20101209
  Receipt Date: 20101007
  Transmission Date: 20110411
  Serious: Yes (Other)
  Sender: FDA-Public Use
  Company Number: PL-021302

PATIENT
  Age: 70 Year
  Sex: Male

DRUGS (2)
  1. (CHLORAMBUCIL) [Suspect]
     Indication: CHRONIC LYMPHOCYTIC LEUKAEMIA
     Dosage: 52 MG 52 MG QD ORAL
     Route: 048
     Dates: start: 20100111
  2. METOPROLOL TARTRATE [Concomitant]

REACTIONS (2)
  - AGRANULOCYTOSIS [None]
  - PLATELET COUNT DECREASED [None]
